FAERS Safety Report 17499022 (Version 2)
Quarter: 2020Q1

REPORT INFORMATION
  Report Type: Spontaneous
  Country: US (occurrence: US)
  Receive Date: 20200305
  Receipt Date: 20200326
  Transmission Date: 20200409
  Serious: Yes (Other)
  Sender: FDA-Public Use
  Company Number: US-BION-008597

PATIENT
  Age: 83 Year
  Sex: Female

DRUGS (6)
  1. BIONPHARMA^S DOFETILIDE UNKNOWN [Suspect]
     Active Substance: DOFETILIDE
     Indication: PRODUCT USED FOR UNKNOWN INDICATION
  2. DOXYCYCLINE HIKMA PHARMACEUTICALS [Concomitant]
     Indication: PRODUCT USED FOR UNKNOWN INDICATION
     Dates: start: 20200112, end: 20200122
  3. BIONPHARMA^S DOFETILIDE UNKNOWN [Suspect]
     Active Substance: DOFETILIDE
     Indication: PRODUCT USED FOR UNKNOWN INDICATION
     Dates: start: 201908, end: 20200122
  4. OMEPRAZOLE AUROBINDO [Suspect]
     Active Substance: OMEPRAZOLE
     Indication: HELICOBACTER INFECTION
     Dosage: TWICE A DAY
     Dates: start: 20200112, end: 20200122
  5. VALIUM [Concomitant]
     Active Substance: DIAZEPAM
     Indication: PAIN
     Dates: start: 20200112, end: 20200122
  6. METRONIDAZOLE TEVA [Suspect]
     Active Substance: METRONIDAZOLE
     Indication: HELICOBACTER INFECTION
     Dosage: STRENGTH 250 MG
     Dates: start: 20200112, end: 20200122

REACTIONS (3)
  - Atrial fibrillation [Unknown]
  - Poor quality sleep [Unknown]
  - Helicobacter infection [Unknown]

NARRATIVE: CASE EVENT DATE: 202001
